FAERS Safety Report 16930819 (Version 5)
Quarter: 2020Q1

REPORT INFORMATION
  Report Type: Spontaneous
  Country: US (occurrence: US)
  Receive Date: 20191017
  Receipt Date: 20200309
  Transmission Date: 20200409
  Serious: No
  Sender: FDA-Public Use
  Company Number: US-PFIZER INC-2019448758

PATIENT
  Age: 65 Year
  Sex: Female

DRUGS (2)
  1. RELPAX [Suspect]
     Active Substance: ELETRIPTAN HYDROBROMIDE
     Indication: MIGRAINE
     Dosage: UNK
  2. RELPAX [Suspect]
     Active Substance: ELETRIPTAN HYDROBROMIDE
     Dosage: 40 MG, AS NEEDED (1 TABLET ORALLY AS NEEDED AT MIGRAINE ONSET, MAY REPEAT X1 IN 2 HRS,MAX 2 IN 24HR)
     Route: 048

REACTIONS (2)
  - Headache [Unknown]
  - Thinking abnormal [Unknown]
